FAERS Safety Report 9983936 (Version 1)
Quarter: 2014Q1

REPORT INFORMATION
  Report Type: Report from Study
  Country: US (occurrence: US)
  Receive Date: 20140307
  Receipt Date: 20140307
  Transmission Date: 20141002
  Serious: No
  Sender: FDA-Public Use
  Company Number: US-ABBVIE-13P-163-1184073-00

PATIENT
  Age: 50 Year
  Sex: Male
  Weight: 95.34 kg

DRUGS (6)
  1. HUMIRA [Suspect]
     Indication: ANKYLOSING SPONDYLITIS
     Route: 058
     Dates: start: 2005, end: 201306
  2. ALPRAZOLAM [Concomitant]
     Indication: ANXIETY
  3. CHLORTHALIDONE [Concomitant]
     Indication: HYPERTENSION
  4. TESTOSTERONE CYPIONATE [Concomitant]
     Indication: BLOOD TESTOSTERONE DECREASED
  5. CELEXA [Concomitant]
     Indication: ANXIETY
  6. PIROXICAM [Concomitant]
     Indication: ANKYLOSING SPONDYLITIS

REACTIONS (4)
  - Pain [Unknown]
  - Musculoskeletal pain [Not Recovered/Not Resolved]
  - Arthralgia [Not Recovered/Not Resolved]
  - Ankylosing spondylitis [Unknown]
